FAERS Safety Report 21137519 (Version 1)
Quarter: 2022Q3

REPORT INFORMATION
  Report Type: Spontaneous
  Country: US (occurrence: None)
  Receive Date: 20220727
  Receipt Date: 20220727
  Transmission Date: 20221027
  Serious: Yes (Other)
  Sender: FDA-Public Use
  Company Number: None

PATIENT
  Age: 35 Year
  Sex: Female
  Weight: 48 kg

DRUGS (4)
  1. BUPROPION HYDROCHLORIDE XL [Suspect]
     Active Substance: BUPROPION HYDROCHLORIDE
     Indication: Drug therapy
     Dosage: FREQUENCY : DAILY;?
     Route: 048
  2. STRATTERA [Suspect]
     Active Substance: ATOMOXETINE HYDROCHLORIDE
     Indication: Drug therapy
     Dosage: FREQUENCY : DAILY;?
     Route: 048
  3. INVEGA [Suspect]
     Active Substance: PALIPERIDONE
     Dosage: FREQUENCY : DAILY;?
     Route: 048
  4. LITHIUM [Suspect]
     Active Substance: LITHIUM
     Dosage: FREQUENCY : DAILY;?
     Route: 048

REACTIONS (3)
  - Sexual dysfunction [None]
  - Depression [None]
  - Sexual abuse [None]

NARRATIVE: CASE EVENT DATE: 20220721
